FAERS Safety Report 8043211-9 (Version None)
Quarter: 2012Q1

REPORT INFORMATION
  Report Type: 
  Country: None (occurrence: None)
  Receive Date: 20120112
  Receipt Date: 20120106
  Transmission Date: 20120608
  Serious: Yes (Other)
  Sender: FDA-Public Use
  Company Number: TR-MEDIMMUNE-MEDI-0014321

PATIENT
  Sex: Female

DRUGS (1)
  1. SYNAGIS [Suspect]
     Route: 030
     Dates: start: 20111028, end: 20111128

REACTIONS (1)
  - BRONCHITIS [None]
